FAERS Safety Report 13090532 (Version 1)
Quarter: 2017Q1

REPORT INFORMATION
  Report Type: Spontaneous
  Country: AU (occurrence: AU)
  Receive Date: 20170105
  Receipt Date: 20170105
  Transmission Date: 20170428
  Serious: Yes (Hospitalization, Other)
  Sender: FDA-Public Use
  Company Number: AU-MYLANLABS-2017M1000830

PATIENT

DRUGS (1)
  1. CLOPIDOGREL [Suspect]
     Active Substance: CLOPIDOGREL BISULFATE
     Indication: PRODUCT USED FOR UNKNOWN INDICATION
     Dosage: 75 MG, QD

REACTIONS (7)
  - Delirium [Recovering/Resolving]
  - Renal atrophy [Unknown]
  - Renal haematoma [Recovered/Resolved]
  - Condition aggravated [Recovering/Resolving]
  - C-reactive protein increased [Recovering/Resolving]
  - Acute kidney injury [Recovering/Resolving]
  - Renal haemorrhage [Recovering/Resolving]
